FAERS Safety Report 7385596-2 (Version None)
Quarter: 2011Q1

REPORT INFORMATION
  Report Type: 
  Country: None (occurrence: None)
  Receive Date: 20110331
  Receipt Date: 20110323
  Transmission Date: 20110831
  Serious: No
  Sender: FDA-Public Use
  Company Number: US-BIOGENIDEC-2011BI011085

PATIENT
  Sex: Female

DRUGS (3)
  1. AVONEX [Concomitant]
     Indication: MULTIPLE SCLEROSIS
     Route: 030
  2. TYSABRI [Suspect]
     Route: 042
     Dates: start: 20060908
  3. TYSABRI [Suspect]
     Indication: MULTIPLE SCLEROSIS
     Route: 042
     Dates: start: 20050216

REACTIONS (10)
  - URINARY INCONTINENCE [None]
  - SENSATION OF HEAVINESS [None]
  - SPEECH DISORDER [None]
  - CLUMSINESS [None]
  - GAIT DISTURBANCE [None]
  - DYSPNOEA [None]
  - VAGINAL HAEMORRHAGE [None]
  - PAIN IN EXTREMITY [None]
  - UTERINE DILATION AND CURETTAGE [None]
  - ASTHENIA [None]
